FAERS Safety Report 24872637 (Version 5)
Quarter: 2025Q2

REPORT INFORMATION
  Report Type: Spontaneous
  Country: JP (occurrence: JP)
  Receive Date: 20250122
  Receipt Date: 20250417
  Transmission Date: 20250717
  Serious: Yes (Other)
  Sender: GALDERMA
  Company Number: JP-GALDERMA-JP2025000613

PATIENT

DRUGS (12)
  1. NEMOLIZUMAB [Suspect]
     Active Substance: NEMOLIZUMAB
     Indication: Dermatitis atopic
     Route: 058
     Dates: start: 20241203, end: 20241203
  2. NEMOLIZUMAB [Suspect]
     Active Substance: NEMOLIZUMAB
     Route: 058
     Dates: start: 20250107, end: 20250107
  3. Bilanoa od [Concomitant]
     Indication: Dermatitis atopic
     Route: 048
     Dates: start: 20240305
  4. CARBOCYSTEINE [Concomitant]
     Active Substance: CARBOCYSTEINE
     Indication: Rhinitis allergic
     Route: 048
     Dates: start: 20240312
  5. Cinal [Concomitant]
     Indication: Post inflammatory pigmentation change
     Route: 048
     Dates: start: 20231226
  6. TRANEXAMIC ACID [Concomitant]
     Active Substance: TRANEXAMIC ACID
     Indication: Post inflammatory pigmentation change
     Route: 048
     Dates: start: 20231226
  7. Heparinoid [Concomitant]
     Indication: Dermatitis atopic
     Route: 061
     Dates: start: 20231010
  8. Hythiol [Concomitant]
     Indication: Post inflammatory pigmentation change
     Route: 048
     Dates: start: 20240402
  9. JUVELA [Concomitant]
     Active Substance: .ALPHA.-TOCOPHEROL\RETINOL
     Indication: Post inflammatory pigmentation change
     Route: 048
     Dates: start: 20240402
  10. BETAMETHASONE DIPROPIONATE [Concomitant]
     Active Substance: BETAMETHASONE DIPROPIONATE
     Indication: Dermatitis atopic
     Route: 061
     Dates: start: 20231010
  11. LOCOID [Concomitant]
     Active Substance: HYDROCORTISONE BUTYRATE
     Indication: Dermatitis atopic
     Route: 061
     Dates: start: 20231010
  12. DELGOCITINIB [Concomitant]
     Active Substance: DELGOCITINIB
     Indication: Dermatitis atopic
     Route: 061
     Dates: start: 20231010

REACTIONS (4)
  - Erythema multiforme [Recovering/Resolving]
  - Malaise [Recovering/Resolving]
  - Eczema [Recovering/Resolving]
  - Rhinitis [Not Recovered/Not Resolved]

NARRATIVE: CASE EVENT DATE: 20241210
